FAERS Safety Report 7452309-5 (Version None)
Quarter: 2011Q2

REPORT INFORMATION
  Report Type: 
  Country: None (occurrence: None)
  Receive Date: 20110502
  Receipt Date: 20110419
  Transmission Date: 20111010
  Serious: Yes (Hospitalization)
  Sender: FDA-Public Use
  Company Number: US-JNJFOC-20110305940

PATIENT
  Sex: Female
  Weight: 31.4 kg

DRUGS (5)
  1. BENADRYL [Concomitant]
     Indication: PREMEDICATION
     Route: 042
  2. REMICADE [Suspect]
     Route: 042
  3. ACETAMINOPHEN [Concomitant]
     Indication: PREMEDICATION
     Route: 048
  4. REMICADE [Suspect]
     Indication: CROHN'S DISEASE
     Route: 042
  5. SOLU-MEDROL [Concomitant]
     Indication: PREMEDICATION
     Route: 042

REACTIONS (14)
  - ANXIETY [None]
  - HYPERVENTILATION [None]
  - CARDIO-RESPIRATORY ARREST [None]
  - CONVERSION DISORDER [None]
  - COLOUR BLINDNESS [None]
  - DIZZINESS [None]
  - HYPERHIDROSIS [None]
  - DISORIENTATION [None]
  - DELUSION [None]
  - VISUAL IMPAIRMENT [None]
  - INFUSION RELATED REACTION [None]
  - ATAXIA [None]
  - HEADACHE [None]
  - LETHARGY [None]
